FAERS Safety Report 23366622 (Version 1)
Quarter: 2024Q1

REPORT INFORMATION
  Report Type: Spontaneous
  Country: US (occurrence: US)
  Receive Date: 20240104
  Receipt Date: 20240104
  Transmission Date: 20240410
  Serious: No
  Sender: FDA-Public Use
  Company Number: US-MYLANLABS-2023M1132856

PATIENT

DRUGS (1)
  1. ESTRADIOL TRANSDERMAL SYSTEM [Suspect]
     Active Substance: ESTRADIOL
     Indication: Product used for unknown indication
     Dosage: UNK, QW
     Route: 062

REACTIONS (6)
  - Erythema [Unknown]
  - Product adhesion issue [Unknown]
  - Product size issue [Unknown]
  - Product design issue [Unknown]
  - Product quality issue [Unknown]
  - Dermatitis [Unknown]
